FAERS Safety Report 10186733 (Version 1)
Quarter: 2014Q2

REPORT INFORMATION
  Report Type: Report from Study
  Country: US (occurrence: US)
  Receive Date: 20140521
  Receipt Date: 20140521
  Transmission Date: 20141212
  Serious: Yes (Other)
  Sender: FDA-Public Use
  Company Number: PHEH2014US009740

PATIENT
  Age: 35 Year
  Sex: Female
  Weight: 84.35 kg

DRUGS (9)
  1. TOBI PODHALER [Suspect]
     Indication: CYSTIC FIBROSIS
     Dosage: 112 MG TWICE A DAY
     Route: 055
     Dates: start: 201308, end: 20140303
  2. TOBI PODHALER [Suspect]
     Indication: LUNG DISORDER
  3. PULMOZYME [Concomitant]
     Dosage: UNK
  4. HYPERTONIC SALINE SOLUTION [Concomitant]
     Dosage: UNK
  5. ALBUTEROL [Concomitant]
     Dosage: UNK
  6. ADVAIR [Concomitant]
  7. PULMICORT [Concomitant]
     Dosage: UNK
  8. PRO-AIR [Concomitant]
     Dosage: UNK
  9. CAYSTON [Concomitant]
     Dosage: UNK

REACTIONS (3)
  - Condition aggravated [Not Recovered/Not Resolved]
  - Cystic fibrosis [Not Recovered/Not Resolved]
  - Pulmonary function test decreased [Not Recovered/Not Resolved]
